FAERS Safety Report 25017217 (Version 1)
Quarter: 2025Q1

REPORT INFORMATION
  Report Type: Spontaneous
  Country: GB (occurrence: GB)
  Receive Date: 20250227
  Receipt Date: 20250227
  Transmission Date: 20250409
  Serious: Yes (Other)
  Sender: GALPHARM INTERNATIONAL
  Company Number: None

PATIENT
  Age: 27 Year
  Sex: Male
  Weight: 60 kg

DRUGS (1)
  1. PERMETHRIN [Suspect]
     Active Substance: PERMETHRIN
     Indication: Product used for unknown indication
     Route: 065
     Dates: start: 202311, end: 202410

REACTIONS (2)
  - Pruritus [Not Recovered/Not Resolved]
  - Nerve injury [Not Recovered/Not Resolved]

NARRATIVE: CASE EVENT DATE: 20240401
